FAERS Safety Report 5886709-1 (Version None)
Quarter: 2008Q3

REPORT INFORMATION
  Report Type: 
  Country: None (occurrence: None)
  Receive Date: 20080917
  Receipt Date: 20080910
  Transmission Date: 20090109
  Serious: Yes (Other)
  Sender: FDA-Public Use
  Company Number: PHEH2008US08154

PATIENT
  Sex: Male
  Weight: 108.84 kg

DRUGS (2)
  1. LOTREL [Suspect]
     Dosage: 10MGAMLO/20MGBENAZ/HCL
  2. ZOCOR [Concomitant]
     Indication: BLOOD CHOLESTEROL

REACTIONS (5)
  - ANXIETY [None]
  - BLOOD PRESSURE INADEQUATELY CONTROLLED [None]
  - DIZZINESS [None]
  - OEDEMA [None]
  - SYNCOPE [None]
